FAERS Safety Report 4771003-2 (Version None)
Quarter: 2005Q3

REPORT INFORMATION
  Report Type: 
  Country: None (occurrence: None)
  Receive Date: 20050914
  Receipt Date: 20050908
  Transmission Date: 20060218
  Serious: Yes (Other)
  Sender: FDA-Public Use
  Company Number: JP-2005-014375

PATIENT
  Age: 40 Year
  Sex: Male

DRUGS (3)
  1. MAGNEVIST I.V. (GADOPENTETATE DIMEGLUMINE) INJECTION, 10 [Suspect]
     Indication: NUCLEAR MAGNETIC RESONANCE IMAGING
     Dosage: 10 ML, 1 DOSE, INTRAVENOUS
     Route: 042
     Dates: start: 20050708, end: 20050708
  2. LOXONIN (LOXOPROFEN SODIUM) [Concomitant]
  3. TOUGHMAC E (ENZYMES NOS) [Concomitant]

REACTIONS (3)
  - DRUG HYPERSENSITIVITY [None]
  - PROCEDURAL COMPLICATION [None]
  - SHOCK [None]
